FAERS Safety Report 20430800 (Version 1)
Quarter: 2022Q1

REPORT INFORMATION
  Report Type: Report from Study
  Country: FR (occurrence: FR)
  Receive Date: 20220204
  Receipt Date: 20220204
  Transmission Date: 20220423
  Serious: Yes (Hospitalization)
  Sender: FDA-Public Use
  Company Number: FR-SERVIER-S21005758

PATIENT

DRUGS (6)
  1. PEGASPARGASE [Suspect]
     Active Substance: PEGASPARGASE
     Indication: Acute lymphocytic leukaemia
     Dosage: 650 IU, (D36)
     Route: 042
     Dates: start: 20210408
  2. TN UNSPECIFIED [Concomitant]
     Indication: Acute lymphocytic leukaemia
     Dosage: 0.8 MG, (D1, D8, D29, D36)
     Route: 042
     Dates: start: 20210304
  3. TN UNSPECIFIED [Concomitant]
     Indication: Acute lymphocytic leukaemia
     Dosage: 3.1 MG, (D1 TO D5, D29 TO D33)
     Route: 048
     Dates: start: 20210304
  4. TN UNSPECIFIED [Concomitant]
     Indication: Acute lymphocytic leukaemia
     Dosage: 26 MG, (D1 TO D21, D29 TO D49)
     Route: 048
     Dates: start: 20210304
  5. TN UNSPECIFIED [Concomitant]
     Indication: Acute lymphocytic leukaemia
     Dosage: 8 MG, (D2, D30)
     Route: 037
     Dates: start: 20210305
  6. TN UNSPECIFIED [Concomitant]
     Dosage: 13 MG, (D8, D15, D22, D36, AND D43)
     Route: 048
     Dates: start: 20210311

REACTIONS (1)
  - Varicella [Recovered/Resolved]

NARRATIVE: CASE EVENT DATE: 20210413
